FAERS Safety Report 25926060 (Version 3)
Quarter: 2025Q4

REPORT INFORMATION
  Report Type: Spontaneous
  Country: EU (occurrence: EU)
  Receive Date: 20251015
  Receipt Date: 20251030
  Transmission Date: 20260118
  Serious: Yes (Death, Hospitalization, Other)
  Sender: ELI LILLY AND COMPANY
  Company Number: EU-ELI_LILLY_AND_COMPANY-IT202510011380

PATIENT
  Age: 67 Year
  Sex: Male

DRUGS (1)
  1. TALTZ [Suspect]
     Active Substance: IXEKIZUMAB
     Indication: Product used for unknown indication
     Dosage: UNK UNK, UNKNOWN
     Route: 065
     Dates: start: 202411

REACTIONS (6)
  - Death [Fatal]
  - Leukaemia [Unknown]
  - Polycythaemia [Unknown]
  - Haematoma [Unknown]
  - Agranulocytosis [Unknown]
  - Sepsis [Unknown]
